FAERS Safety Report 25058899 (Version 4)
Quarter: 2025Q2

REPORT INFORMATION
  Report Type: Spontaneous
  Country: GB (occurrence: GB)
  Receive Date: 20250310
  Receipt Date: 20250626
  Transmission Date: 20250717
  Serious: Yes (Hospitalization)
  Sender: MYLAN
  Company Number: GB-MYLANLABS-2025M1019187

PATIENT
  Age: 44 Year
  Sex: Male

DRUGS (3)
  1. CLOZARIL [Suspect]
     Active Substance: CLOZAPINE
     Indication: Schizophrenia
     Dosage: 250 MILLIGRAM, PM (AT NIGHT)
     Dates: start: 20230830, end: 20250301
  2. CLOZARIL [Suspect]
     Active Substance: CLOZAPINE
     Dosage: 350 MILLIGRAM, QD (PER DAY)
  3. AMISULPRIDE [Concomitant]
     Active Substance: AMISULPRIDE
     Indication: Schizophrenia
     Dosage: 100 MILLIGRAM, BID

REACTIONS (6)
  - Antipsychotic drug level decreased [Unknown]
  - Schizophrenia [Unknown]
  - Differential white blood cell count abnormal [Unknown]
  - Blood prolactin increased [Unknown]
  - Treatment noncompliance [Unknown]
  - Therapy interrupted [Unknown]

NARRATIVE: CASE EVENT DATE: 20250301
